FAERS Safety Report 5251197-5 (Version None)
Quarter: 2007Q1

REPORT INFORMATION
  Report Type: 
  Country: None (occurrence: None)
  Receive Date: 20070228
  Receipt Date: 20060914
  Transmission Date: 20070707
  Serious: No
  Sender: FDA-Public Use
  Company Number: US-GLAXOSMITHKLINE-A0620194A

PATIENT
  Age: 55 Year
  Sex: Female

DRUGS (8)
  1. LAMICTAL [Suspect]
     Indication: BIPOLAR DISORDER
     Dosage: 50MG PER DAY
     Route: 048
     Dates: start: 20060720, end: 20060907
  2. CYMBALTA [Concomitant]
  3. BENICAR [Concomitant]
  4. XANAX [Concomitant]
  5. ACTOS [Concomitant]
  6. AMBIEN [Concomitant]
  7. DARVOCET [Concomitant]
  8. PREMPRO [Concomitant]

REACTIONS (1)
  - HEART RATE INCREASED [None]
